FAERS Safety Report 11316422 (Version 5)
Quarter: 2015Q3

REPORT INFORMATION
  Report Type: Spontaneous
  Country: DE (occurrence: DE)
  Receive Date: 20150728
  Receipt Date: 20150917
  Transmission Date: 20151125
  Serious: Yes (Hospitalization, Other)
  Sender: FDA-Public Use
  Company Number: DE-UCBSA-2015023805

PATIENT
  Age: 60 Year
  Sex: Female

DRUGS (13)
  1. RAMIPRIL. [Suspect]
     Active Substance: RAMIPRIL
     Indication: PRODUCT USED FOR UNKNOWN INDICATION
     Dosage: 2.5
     Route: 048
     Dates: start: 20150716, end: 20150716
  2. CIMETIDINE [Suspect]
     Active Substance: CIMETIDINE
     Indication: PRODUCT USED FOR UNKNOWN INDICATION
     Dosage: 400, 20 TABLETS MAXIMUM
     Route: 048
     Dates: start: 20150716, end: 20150716
  3. TRANSTEC [Suspect]
     Active Substance: BUPRENORPHINE
     Indication: PRODUCT USED FOR UNKNOWN INDICATION
     Dosage: 52.5 MYG/H MEMBRANE PATCH,5 PATCHES FOR HOURS
     Route: 062
     Dates: start: 20150716, end: 20150716
  4. CHOLAGOGUM [Suspect]
     Active Substance: HERBALS
     Indication: BILIARY TRACT DISORDER
     Dosage: UNKNOWN THERAPEUTIC DOSE
  5. CHOLAGOGUM [Suspect]
     Active Substance: HERBALS
     Dosage: UNKNOWN DOSE
     Route: 048
     Dates: start: 20150716, end: 20150716
  6. MIANSERIN [Suspect]
     Active Substance: MIANSERIN
     Indication: PRODUCT USED FOR UNKNOWN INDICATION
     Dosage: 10
     Route: 048
     Dates: start: 20150716, end: 20150716
  7. MOLSIHEXAL [Suspect]
     Active Substance: MOLSIDOMINE
     Indication: PRODUCT USED FOR UNKNOWN INDICATION
     Dosage: 8
     Route: 048
     Dates: start: 20150716, end: 20150716
  8. TENSOBON COMP [Suspect]
     Active Substance: CAPTOPRIL\HYDROCHLOROTHIAZIDE
     Indication: PRODUCT USED FOR UNKNOWN INDICATION
     Dosage: 1250 MG, ONE TIME DOSE
     Route: 048
     Dates: start: 20150716, end: 20150716
  9. VALPRO AL [Suspect]
     Active Substance: VALPROATE SODIUM
     Indication: PRODUCT USED FOR UNKNOWN INDICATION
     Dosage: 500 MG, 16 TABL MAXIMUM
     Route: 048
     Dates: start: 20150716, end: 20150716
  10. FLUOXETIN 1A PHARMA [Suspect]
     Active Substance: FLUOXETINE HYDROCHLORIDE
     Indication: PRODUCT USED FOR UNKNOWN INDICATION
     Dosage: 40, 100 TABLETS MAXIMUM
     Route: 048
     Dates: start: 20150716, end: 20150716
  11. PALEXIA [Suspect]
     Active Substance: TAPENTADOL HYDROCHLORIDE
     Indication: PRODUCT USED FOR UNKNOWN INDICATION
     Dosage: 50 MG, 22 TABLETS MAXIMUM
     Route: 048
     Dates: start: 20150716, end: 20150716
  12. ERGENYL CHRONO [Suspect]
     Active Substance: VALPROIC ACID
     Indication: PRODUCT USED FOR UNKNOWN INDICATION
     Dosage: 500,67 TAB MAXIMUM
     Route: 048
     Dates: start: 20150716, end: 20150716
  13. PERAZINE [Suspect]
     Active Substance: PERAZINE
     Indication: PRODUCT USED FOR UNKNOWN INDICATION
     Dosage: 100, 100 TABLETS MAXIMUM
     Route: 048
     Dates: start: 20150716, end: 20150716

REACTIONS (6)
  - Hypotension [Unknown]
  - Somnolence [Unknown]
  - Metabolic acidosis [Unknown]
  - Diastolic hypotension [Unknown]
  - Suicide attempt [Unknown]
  - Sluggishness [Unknown]

NARRATIVE: CASE EVENT DATE: 20150716
